FAERS Safety Report 8991051 (Version 2)
Quarter: 2013Q2

REPORT INFORMATION
  Report Type: Spontaneous
  Country: IT (occurrence: IT)
  Receive Date: 20121231
  Receipt Date: 20130529
  Transmission Date: 20140414
  Serious: Yes (Other)
  Sender: FDA-Public Use
  Company Number: IT-UCBSA-073818

PATIENT
  Age: 41 Year
  Sex: Female

DRUGS (5)
  1. CIMZIA [Suspect]
     Indication: RHEUMATOID ARTHRITIS
     Dosage: FREQUENCY CODE: CYCLIC
     Route: 058
     Dates: start: 20121130, end: 20121130
  2. LANSOPRAZOLE [Concomitant]
     Dosage: UNKNOWN DOSE
  3. LODOTRA [Concomitant]
     Dosage: UNKNOWN DOSE
  4. FOSAVANCE [Concomitant]
     Dosage: 70 MG/ 70 MCG; DOSE PER INTAKE: 70 MG
  5. ARAVA [Concomitant]
     Dosage: DOSE PER INTAKE: 20 MG

REACTIONS (3)
  - Rash erythematous [Recovered/Resolved]
  - Pruritus [Recovered/Resolved]
  - Cough [Recovered/Resolved]
